FAERS Safety Report 6176646-X (Version None)
Quarter: 2009Q2

REPORT INFORMATION
  Report Type: 
  Country: None (occurrence: None)
  Receive Date: 20090501
  Receipt Date: 20081024
  Transmission Date: 20091009
  Serious: Yes (Hospitalization)
  Sender: FDA-Public Use
  Company Number: US-ALEXION-A200800271

PATIENT

DRUGS (2)
  1. SOLIRIS [Suspect]
     Indication: PAROXYSMAL NOCTURNAL HAEMOGLOBINURIA
     Dosage: UNK, SINGLE
     Route: 042
     Dates: start: 20080909, end: 20080909
  2. ARANESP [Concomitant]

REACTIONS (4)
  - BLOOD POTASSIUM INCREASED [None]
  - PANCYTOPENIA [None]
  - RASH [None]
  - SYNCOPE [None]
